FAERS Safety Report 11507129 (Version 1)
Quarter: 2015Q3

REPORT INFORMATION
  Report Type: Spontaneous
  Country: IN (occurrence: None)
  Receive Date: 20150914
  Receipt Date: 20150914
  Transmission Date: 20151125
  Serious: Yes (Other)
  Sender: FDA-Public Use
  Company Number: None

PATIENT
  Age: 38 Year
  Sex: Male
  Weight: 66 kg

DRUGS (1)
  1. TAMIFLU [Suspect]
     Active Substance: OSELTAMIVIR PHOSPHATE
     Indication: INFLUENZA A VIRUS TEST POSITIVE
     Route: 048
     Dates: start: 20150906, end: 20150910

REACTIONS (5)
  - Abnormal behaviour [None]
  - Mental disorder [None]
  - Balance disorder [None]
  - Speech disorder [None]
  - Poor quality sleep [None]

NARRATIVE: CASE EVENT DATE: 20150907
